FAERS Safety Report 8506524-X (Version None)
Quarter: 2012Q3

REPORT INFORMATION
  Report Type: 
  Country: None (occurrence: None)
  Receive Date: 20120712
  Receipt Date: 20120418
  Transmission Date: 20120928
  Serious: No
  Sender: FDA-Public Use
  Company Number: US-GLAXOSMITHKLINE-A0974195A

PATIENT
  Age: 61 Year
  Sex: Male

DRUGS (4)
  1. PRAVACHOL [Concomitant]
  2. PLAVIX [Concomitant]
  3. JALYN [Suspect]
     Indication: BENIGN PROSTATIC HYPERPLASIA
     Dosage: 1CAP PER DAY
     Route: 048
     Dates: start: 20111001
  4. NORVASC [Concomitant]

REACTIONS (3)
  - PALPITATIONS [None]
  - MIDDLE INSOMNIA [None]
  - HEART RATE IRREGULAR [None]
